FAERS Safety Report 8895661 (Version 4)
Quarter: 2013Q3

REPORT INFORMATION
  Report Type: Spontaneous
  Country: US (occurrence: US)
  Receive Date: 20121108
  Receipt Date: 20130729
  Transmission Date: 20140515
  Serious: Yes (Hospitalization, Disabling, Other)
  Sender: FDA-Public Use
  Company Number: US-009507513-1210USA012650

PATIENT
  Sex: Female
  Weight: 58.5 kg

DRUGS (13)
  1. FOSAMAX [Suspect]
     Indication: OSTEOPENIA
     Dosage: 70 MG, QW
     Route: 048
  2. FOSAMAX [Suspect]
     Indication: OSTEOPENIA
     Dosage: 70 MG, QW
     Route: 048
     Dates: start: 20081027, end: 201105
  3. ALENDRONATE SODIUM [Suspect]
     Indication: OSTEOPENIA
     Dosage: 70 MG, QW
     Route: 048
     Dates: start: 20081027, end: 201105
  4. ASCORBIC ACID [Concomitant]
     Dosage: UNK
     Dates: start: 1998
  5. VITAMIN D (UNSPECIFIED) [Concomitant]
     Dosage: UNK
     Dates: start: 1998
  6. VITAMIN E [Concomitant]
     Dosage: UNK
     Dates: start: 1998
  7. LIPITOR [Concomitant]
     Indication: HYPERLIPIDAEMIA
     Dosage: UNK
     Dates: start: 200701
  8. KLOR-CON [Concomitant]
     Indication: MINERAL SUPPLEMENTATION
  9. DIOVAN [Concomitant]
     Indication: HYPERTENSION
  10. DIOVAN HCT [Concomitant]
     Indication: HYPERTENSION
     Dosage: 160 MG/12.5 MG, QD
  11. DIOVAN HCT [Concomitant]
     Dosage: 320 MG/12.5 MG, QD
     Dates: start: 20080812
  12. METOPROLOL [Concomitant]
     Indication: HYPERTENSION
     Dosage: UNK
     Dates: start: 200701
  13. TOPROL XL TABLETS [Concomitant]
     Indication: HYPERTENSION

REACTIONS (29)
  - Femur fracture [Not Recovered/Not Resolved]
  - Open reduction of fracture [Unknown]
  - Carpal tunnel decompression [Unknown]
  - Tenolysis [Unknown]
  - Skeletal injury [Not Recovered/Not Resolved]
  - Foot fracture [Not Recovered/Not Resolved]
  - Transfusion [Unknown]
  - Low turnover osteopathy [Not Recovered/Not Resolved]
  - Foot fracture [Unknown]
  - Restless legs syndrome [Unknown]
  - Foot fracture [Recovered/Resolved]
  - Vertigo positional [Unknown]
  - Nasal congestion [Unknown]
  - Hypolipidaemia [Unknown]
  - Inner ear disorder [Unknown]
  - Vestibular disorder [Unknown]
  - Hot flush [Unknown]
  - Sinus bradycardia [Unknown]
  - Arthritis [Unknown]
  - Sleep disorder [Unknown]
  - Victim of crime [Unknown]
  - Fall [Unknown]
  - Muscle strain [Unknown]
  - Tendonitis [Unknown]
  - Hysterectomy [Unknown]
  - Stress [Unknown]
  - Drug ineffective [Unknown]
  - Limb discomfort [Unknown]
  - Limb discomfort [Unknown]
